FAERS Safety Report 23974822 (Version 2)
Quarter: 2024Q2

REPORT INFORMATION
  Report Type: Spontaneous
  Country: BG (occurrence: BG)
  Receive Date: 20240614
  Receipt Date: 20240621
  Transmission Date: 20240715
  Serious: Yes (Disabling)
  Sender: FDA-Public Use
  Company Number: BG-BoehringerIngelheim-2024-BI-032548

PATIENT
  Age: 40 Year
  Sex: Female

DRUGS (3)
  1. MELOXICAM [Suspect]
     Active Substance: MELOXICAM
     Indication: Musculoskeletal stiffness
  2. MELOXICAM [Suspect]
     Active Substance: MELOXICAM
     Indication: Monoparesis
  3. LEVETIRACETAM [Concomitant]
     Active Substance: LEVETIRACETAM
     Indication: Product used for unknown indication

REACTIONS (6)
  - Drug ineffective [Unknown]
  - Condition aggravated [Unknown]
  - Gait disturbance [Unknown]
  - Acute stress disorder [Unknown]
  - Memory impairment [Unknown]
  - Muscle spasms [Unknown]
